FAERS Safety Report 19893835 (Version 2)
Quarter: 2021Q4

REPORT INFORMATION
  Report Type: Report from Study
  Country: US (occurrence: US)
  Receive Date: 20210928
  Receipt Date: 20211007
  Transmission Date: 20220303
  Serious: Yes (Other)
  Sender: FDA-Public Use
  Company Number: NVSC2021US214441

PATIENT
  Sex: Male

DRUGS (1)
  1. KESIMPTA [Suspect]
     Active Substance: OFATUMUMAB
     Indication: Multiple sclerosis
     Dosage: UNK UNK, QMO
     Route: 030

REACTIONS (11)
  - Mental impairment [Unknown]
  - Multiple sclerosis [Unknown]
  - Mobility decreased [Recovered/Resolved]
  - Gait disturbance [Unknown]
  - Temperature intolerance [Unknown]
  - Fear [Recovering/Resolving]
  - Nervousness [Recovering/Resolving]
  - Influenza like illness [Recovered/Resolved]
  - Tremor [Recovered/Resolved]
  - Fatigue [Unknown]
  - Incorrect route of product administration [Unknown]
